FAERS Safety Report 19007803 (Version 1)
Quarter: 2021Q1

REPORT INFORMATION
  Report Type: Spontaneous
  Country: CA (occurrence: CA)
  Receive Date: 20210315
  Receipt Date: 20210315
  Transmission Date: 20210420
  Serious: Yes (Other)
  Sender: FDA-Public Use
  Company Number: CA-PFIZER INC-2021227183

PATIENT

DRUGS (6)
  1. RITUXIMAB. [Suspect]
     Active Substance: RITUXIMAB
     Indication: CHRONIC MYELOMONOCYTIC LEUKAEMIA
  2. RITUXIMAB. [Suspect]
     Active Substance: RITUXIMAB
     Indication: CHRONIC GRAFT VERSUS HOST DISEASE
  3. IMATINIB MESILATE [Suspect]
     Active Substance: IMATINIB MESYLATE
     Indication: CHRONIC MYELOMONOCYTIC LEUKAEMIA
  4. IMATINIB MESILATE [Suspect]
     Active Substance: IMATINIB MESYLATE
     Indication: CHRONIC GRAFT VERSUS HOST DISEASE
  5. MYCOPHENOLATE MOFETIL. [Suspect]
     Active Substance: MYCOPHENOLATE MOFETIL
     Indication: CHRONIC MYELOMONOCYTIC LEUKAEMIA
     Route: 065
  6. MYCOPHENOLATE MOFETIL. [Suspect]
     Active Substance: MYCOPHENOLATE MOFETIL
     Indication: CHRONIC GRAFT VERSUS HOST DISEASE

REACTIONS (3)
  - Off label use [Unknown]
  - Diabetes mellitus inadequate control [Not Recovered/Not Resolved]
  - Drug ineffective [Not Recovered/Not Resolved]
